FAERS Safety Report 22098934 (Version 1)
Quarter: 2023Q1

REPORT INFORMATION
  Report Type: Spontaneous
  Country: US (occurrence: None)
  Receive Date: 20230315
  Receipt Date: 20230315
  Transmission Date: 20230418
  Serious: Yes (unspecified)
  Sender: FDA-Public Use
  Company Number: None

PATIENT
  Age: 61 Year
  Sex: Male
  Weight: 92 kg

DRUGS (3)
  1. VANCOMYCIN [Suspect]
     Active Substance: VANCOMYCIN
     Indication: Staphylococcal bacteraemia
     Dosage: FREQUENCY : ONCE;?
     Route: 040
     Dates: start: 20230302, end: 20230302
  2. CEFTRIAXONE [Concomitant]
     Active Substance: CEFTRIAXONE
     Dates: start: 20230302, end: 20230302
  3. vancomycin PO [Concomitant]
     Dates: start: 20230302, end: 20230302

REACTIONS (6)
  - Infusion related reaction [None]
  - Dyspnoea [None]
  - Rash [None]
  - Dysphonia [None]
  - Pharyngeal swelling [None]
  - Immune-mediated adverse reaction [None]

NARRATIVE: CASE EVENT DATE: 20230302
